FAERS Safety Report 15365094 (Version 1)
Quarter: 2018Q4

REPORT INFORMATION
  Report Type: Spontaneous
  Country: IN (occurrence: IN)
  Receive Date: 20180910
  Receipt Date: 20180910
  Transmission Date: 20190204
  Serious: Yes (Hospitalization)
  Sender: FDA-Public Use
  Company Number: IN-VIVIMED-2017SP015260

PATIENT

DRUGS (2)
  1. METRONIDAZOLE. [Suspect]
     Active Substance: METRONIDAZOLE
     Dosage: 800 MG, TID
     Route: 048
  2. METRONIDAZOLE. [Suspect]
     Active Substance: METRONIDAZOLE
     Indication: LIVER ABSCESS
     Dosage: 800 ML, TID
     Route: 042

REACTIONS (7)
  - Neurotoxicity [Recovered/Resolved]
  - Dysarthria [Recovered/Resolved]
  - Romberg test positive [Recovered/Resolved]
  - Ataxia [Recovered/Resolved]
  - Cerebellar syndrome [Recovered/Resolved]
  - Vertigo [Recovered/Resolved]
  - Apraxia [Recovered/Resolved]
